FAERS Safety Report 12405880 (Version 3)
Quarter: 2016Q2

REPORT INFORMATION
  Report Type: Spontaneous
  Country: GB (occurrence: GB)
  Receive Date: 20160526
  Receipt Date: 20160620
  Transmission Date: 20160815
  Serious: Yes (Other)
  Sender: FDA-Public Use
  Company Number: GB-009507513-1605GBR011683

PATIENT
  Age: 40 Year
  Sex: Female

DRUGS (6)
  1. FLUOROURACIL. [Suspect]
     Active Substance: FLUOROURACIL
     Indication: PRODUCT USED FOR UNKNOWN INDICATION
     Dosage: UNK,RECEIVED AS FEC
     Dates: start: 20160512
  2. ZOFRAN [Suspect]
     Active Substance: ONDANSETRON HYDROCHLORIDE
     Indication: PRODUCT USED FOR UNKNOWN INDICATION
     Dosage: 8 MG, UNK
     Route: 042
     Dates: start: 20160512
  3. EMEND [Suspect]
     Active Substance: APREPITANT
     Indication: PRODUCT USED FOR UNKNOWN INDICATION
     Dosage: 125 MG, UNK,
     Route: 048
     Dates: start: 20160512
  4. CYCLOPHOSPHAMIDE. [Concomitant]
     Active Substance: CYCLOPHOSPHAMIDE
     Dosage: UNK, RECEIVED AS FEC
     Dates: start: 20160512
  5. NEULASTA [Suspect]
     Active Substance: PEGFILGRASTIM
     Indication: PRODUCT USED FOR UNKNOWN INDICATION
     Dosage: 6 MG, UNK
     Route: 058
     Dates: start: 20160513
  6. EPIRUBICIN [Concomitant]
     Active Substance: EPIRUBICIN
     Dosage: UNK,RECEIVED AS FEC.
     Dates: start: 20160512

REACTIONS (4)
  - Haemorrhoidal haemorrhage [Unknown]
  - Diarrhoea [Unknown]
  - Fatigue [Unknown]
  - Nausea [Unknown]
